FAERS Safety Report 16565897 (Version 10)
Quarter: 2020Q2

REPORT INFORMATION
  Report Type: Spontaneous
  Country: US (occurrence: US)
  Receive Date: 20190712
  Receipt Date: 20200520
  Transmission Date: 20200713
  Serious: No
  Sender: FDA-Public Use
  Company Number: US-PFIZER INC-2019291776

PATIENT
  Age: 59 Year
  Sex: Female

DRUGS (2)
  1. RELPAX [Suspect]
     Active Substance: ELETRIPTAN HYDROBROMIDE
     Indication: MIGRAINE
     Dosage: 40 MG, AS NEEDED
  2. RELPAX [Suspect]
     Active Substance: ELETRIPTAN HYDROBROMIDE
     Indication: HEADACHE

REACTIONS (9)
  - Memory impairment [Unknown]
  - Drug ineffective [Unknown]
  - Malaise [Unknown]
  - Blood glucose decreased [Unknown]
  - Balance disorder [Unknown]
  - Pain [Unknown]
  - Visual impairment [Unknown]
  - Photophobia [Unknown]
  - Hyperacusis [Unknown]
